FAERS Safety Report 18932180 (Version 1)
Quarter: 2021Q1

REPORT INFORMATION
  Report Type: Spontaneous
  Country: IT (occurrence: IT)
  Receive Date: 20210224
  Receipt Date: 20210224
  Transmission Date: 20210420
  Serious: Yes (Other)
  Sender: FDA-Public Use
  Company Number: IT-TEVA-2021-IT-1879469

PATIENT
  Age: 79 Year
  Sex: Male
  Weight: 85 kg

DRUGS (8)
  1. MINIAS [Concomitant]
     Active Substance: LORMETAZEPAM
  2. CLEXANE [Concomitant]
     Active Substance: ENOXAPARIN SODIUM
     Dosage: 4KU
  3. CEFTRIAXONE. [Concomitant]
     Active Substance: CEFTRIAXONE
  4. KROVANEG [Concomitant]
  5. PARACETAMOL [Concomitant]
     Active Substance: ACETAMINOPHEN
  6. AZITHROMYCIN ANHYDROUS. [Suspect]
     Active Substance: AZITHROMYCIN ANHYDROUS
     Indication: PNEUMONITIS
     Dosage: 500MILLIGRAM
     Dates: start: 20201225, end: 20201229
  7. DEXAMETHASONE. [Concomitant]
     Active Substance: DEXAMETHASONE
  8. SINVACOR [Concomitant]
     Active Substance: SIMVASTATIN
     Dosage: 20MILLIGRAM

REACTIONS (2)
  - Hepatic failure [Recovering/Resolving]
  - Transaminases increased [Recovering/Resolving]

NARRATIVE: CASE EVENT DATE: 20201228
